FAERS Safety Report 12830817 (Version 2)
Quarter: 2016Q4

REPORT INFORMATION
  Report Type: Report from Study
  Country: None (occurrence: LU)
  Receive Date: 20161007
  Receipt Date: 20161011
  Transmission Date: 20170207
  Serious: Yes (Other)
  Sender: FDA-Public Use
  Company Number: LU-ABBVIE-15P-098-1521253-00

PATIENT
  Age: 76 Year
  Sex: Female

DRUGS (4)
  1. DUODOPA [Suspect]
     Active Substance: CARBIDOPA\LEVODOPA
     Dosage: AM=7.5ML; CD=3.8ML/HR DURING 16HRS; ED=2.2ML
     Route: 050
     Dates: start: 20140304, end: 20140522
  2. DUODOPA [Suspect]
     Active Substance: CARBIDOPA\LEVODOPA
     Dosage: AM=7.5ML; CD=3.3ML/HR DURING 16HRS; ED=2ML
     Route: 050
  3. DUODOPA [Suspect]
     Active Substance: CARBIDOPA\LEVODOPA
     Indication: PARKINSON^S DISEASE
     Dosage: AM = 9ML; CD=4.2ML/HR DURING 16HRS; ED=2ML
     Route: 050
     Dates: start: 20140124, end: 20140304
  4. DUODOPA [Suspect]
     Active Substance: CARBIDOPA\LEVODOPA
     Dosage: AM=7.5ML; CD=3.3ML/HR DURING 16HRS; ED=2ML
     Route: 050
     Dates: start: 20140522, end: 201609

REACTIONS (4)
  - Neurodegenerative disorder [Not Recovered/Not Resolved]
  - Drug dependence [Not Recovered/Not Resolved]
  - Dysphagia [Not Recovered/Not Resolved]
  - General physical health deterioration [Not Recovered/Not Resolved]

NARRATIVE: CASE EVENT DATE: 201609
